FAERS Safety Report 11885117 (Version 3)
Quarter: 2016Q1

REPORT INFORMATION
  Report Type: Spontaneous
  Country: US (occurrence: US)
  Receive Date: 20160104
  Receipt Date: 20160112
  Transmission Date: 20160526
  Serious: Yes (Other)
  Sender: FDA-Public Use
  Company Number: US-GE HEALTHCARE MEDICAL DIAGNOSTICS-OMPQ-PR-1512S-3206

PATIENT
  Age: 60 Year
  Sex: Female

DRUGS (2)
  1. OMNIPAQUE [Suspect]
     Active Substance: IOHEXOL
     Indication: PRODUCT USED FOR UNKNOWN INDICATION
     Route: 042
     Dates: start: 20151207, end: 20151207
  2. OMNIPAQUE [Suspect]
     Active Substance: IOHEXOL
     Indication: DIAGNOSTIC PROCEDURE

REACTIONS (6)
  - Pruritus [Unknown]
  - Cough [Unknown]
  - Nasal congestion [Unknown]
  - Dyspnoea [Unknown]
  - Bronchospasm [Unknown]
  - Urticaria [Unknown]

NARRATIVE: CASE EVENT DATE: 201512
